FAERS Safety Report 7473887-6 (Version None)
Quarter: 2011Q2

REPORT INFORMATION
  Report Type: 
  Country: None (occurrence: None)
  Receive Date: 20110511
  Receipt Date: 20110505
  Transmission Date: 20111010
  Serious: Yes (Life-Threatening)
  Sender: FDA-Public Use
  Company Number: FR-ASTRAZENECA-2011SE26444

PATIENT
  Age: 16628 Day
  Sex: Female

DRUGS (3)
  1. PROPOFOL [Suspect]
     Indication: ANAESTHESIA
     Route: 042
     Dates: start: 20110427, end: 20110427
  2. XYLOCAINE [Suspect]
     Indication: ANAESTHESIA
     Route: 042
     Dates: start: 20110424, end: 20110427
  3. QUELICIN [Suspect]
     Indication: ANAESTHESIA
     Route: 042
     Dates: start: 20110427, end: 20110427

REACTIONS (2)
  - HYPOTENSION [None]
  - TACHYCARDIA [None]
